FAERS Safety Report 11574397 (Version 1)
Quarter: 2015Q3

REPORT INFORMATION
  Report Type: Spontaneous
  Country: US (occurrence: US)
  Receive Date: 20150930
  Receipt Date: 20150930
  Transmission Date: 20151125
  Serious: No
  Sender: FDA-Public Use
  Company Number: US-ASTRAZENECA-2015SE91360

PATIENT
  Sex: Female
  Weight: 86.2 kg

DRUGS (3)
  1. BYDUREON [Suspect]
     Active Substance: EXENATIDE
     Indication: TYPE 2 DIABETES MELLITUS
     Route: 058
  2. LEVEMIR [Concomitant]
     Active Substance: INSULIN DETEMIR
     Indication: TYPE 2 DIABETES MELLITUS
  3. JANUMET [Concomitant]
     Active Substance: METFORMIN HYDROCHLORIDE\SITAGLIPTIN PHOSPHATE
     Indication: TYPE 2 DIABETES MELLITUS

REACTIONS (14)
  - Hyperhidrosis [Unknown]
  - Feeling jittery [Unknown]
  - Drug dose omission [Unknown]
  - Dizziness [Unknown]
  - Confusional state [Unknown]
  - Hunger [Unknown]
  - Asthenia [Unknown]
  - Heart rate increased [Unknown]
  - Tremor [Unknown]
  - Somnolence [Unknown]
  - Headache [Unknown]
  - Irritability [Unknown]
  - Hypoglycaemia [Unknown]
  - Malaise [Unknown]
